FAERS Safety Report 10177023 (Version 1)
Quarter: 2014Q2

REPORT INFORMATION
  Report Type: Spontaneous
  Country: US (occurrence: None)
  Receive Date: 20140515
  Receipt Date: 20140515
  Transmission Date: 20141212
  Serious: No
  Sender: FDA-Public Use
  Company Number: None

PATIENT
  Age: 60 Year
  Sex: Female
  Weight: 83.92 kg

DRUGS (1)
  1. XARELTO 20 MG JANSEN [Suspect]
     Indication: ATRIAL FIBRILLATION
     Dosage: 1 PILL WITH DINNER?ONCE DAILY?TAKEN BY MOUTH
     Route: 048
     Dates: start: 20140426, end: 20140426

REACTIONS (2)
  - Headache [None]
  - Sleep disorder [None]
